FAERS Safety Report 4851293-8 (Version None)
Quarter: 2005Q4

REPORT INFORMATION
  Report Type: 
  Country: None (occurrence: None)
  Receive Date: 20051212
  Receipt Date: 20030930
  Transmission Date: 20060501
  Serious: Yes (Life-Threatening, Hospitalization)
  Sender: FDA-Public Use
  Company Number: 200318609US

PATIENT
  Sex: Female
  Weight: 110.9 kg

DRUGS (13)
  1. TAXOTERE [Suspect]
     Indication: BREAST CANCER
     Route: 042
     Dates: start: 20030922, end: 20030922
  2. XELODA [Suspect]
     Indication: BREAST CANCER
     Route: 048
     Dates: start: 20030922, end: 20030929
  3. ADRIAMYCIN [Suspect]
     Indication: BREAST CANCER
     Route: 042
     Dates: start: 20030701
  4. CYTOXAN [Suspect]
     Indication: BREAST CANCER
     Route: 042
     Dates: start: 20030701
  5. XANAX [Concomitant]
     Indication: ANXIETY
     Dates: start: 20030708
  6. FLEXERIL [Concomitant]
     Indication: FIBROMYALGIA
  7. TYLENOL W/ CODEINE [Concomitant]
     Indication: PAIN
     Dosage: DOSE: 1 OR 2
     Dates: start: 20030902
  8. COMPAZINE [Concomitant]
     Indication: NAUSEA
     Dates: start: 20030701
  9. COMPAZINE [Concomitant]
     Indication: VOMITING
     Dates: start: 20030701
  10. BENADRYL [Concomitant]
     Indication: NAUSEA
     Dosage: DOSE: 1/2 INCH
     Route: 061
     Dates: start: 20030722
  11. BENADRYL [Concomitant]
     Indication: VOMITING
     Dosage: DOSE: 1/2 INCH
     Route: 061
     Dates: start: 20030722
  12. ATIVAN [Concomitant]
     Dosage: DOSE: 1/2 INCH
     Route: 061
     Dates: start: 20030722
  13. DECADRON [Concomitant]
     Dosage: DOSE: 1/2 INCH
     Route: 061
     Dates: start: 20030722

REACTIONS (10)
  - BLINDNESS [None]
  - BLINDNESS TRANSIENT [None]
  - CARDIAC FAILURE CONGESTIVE [None]
  - CARDIOMYOPATHY ACUTE [None]
  - CHEST PAIN [None]
  - DYSPNOEA [None]
  - EJECTION FRACTION DECREASED [None]
  - SINUS TACHYCARDIA [None]
  - SYNCOPE [None]
  - VENTRICULAR HYPOKINESIA [None]
